FAERS Safety Report 16365400 (Version 1)
Quarter: 2019Q2

REPORT INFORMATION
  Report Type: Spontaneous
  Country: US (occurrence: US)
  Receive Date: 20190420
  Receipt Date: 20190420
  Transmission Date: 20190711
  Serious: Yes (Hospitalization)
  Sender: FDA-Public Use
  Company Number: None

PATIENT
  Age: 45 Year
  Sex: Female
  Weight: 69.9 kg

DRUGS (1)
  1. ASPIRIN. [Suspect]
     Active Substance: ASPIRIN
     Dates: end: 20190311

REACTIONS (6)
  - Chest pain [None]
  - Haemoptysis [None]
  - Cough [None]
  - Pneumonitis [None]
  - Respiratory syncytial virus infection [None]
  - Organising pneumonia [None]

NARRATIVE: CASE EVENT DATE: 20190408
